FAERS Safety Report 8101291-6 (Version None)
Quarter: 2012Q1

REPORT INFORMATION
  Report Type: 
  Country: None (occurrence: None)
  Receive Date: 20120129
  Receipt Date: 20110929
  Transmission Date: 20120608
  Serious: Yes (Other)
  Sender: FDA-Public Use
  Company Number: US-ABBOTT-11P-163-0859222-00

PATIENT

DRUGS (1)
  1. HUMIRA [Suspect]
     Indication: PSORIASIS
     Dates: end: 20110901

REACTIONS (3)
  - OBESITY SURGERY [None]
  - UNEVALUABLE EVENT [None]
  - PSORIASIS [None]
